FAERS Safety Report 11589022 (Version 1)
Quarter: 2015Q4

REPORT INFORMATION
  Report Type: Report from Study
  Country: GB (occurrence: GB)
  Receive Date: 20151002
  Receipt Date: 20151002
  Transmission Date: 20160304
  Serious: Yes (Death, Other)
  Sender: FDA-Public Use
  Company Number: GB-CELGENE-GBR-2015094740

PATIENT

DRUGS (1)
  1. AZACITIDINE. [Suspect]
     Active Substance: AZACITIDINE
     Indication: ACUTE MYELOID LEUKAEMIA
     Dosage: 6.4286 MILLIGRAM/SQ. METER
     Route: 058

REACTIONS (35)
  - Hepatic function abnormal [Unknown]
  - Dry skin [Unknown]
  - Vomiting [Unknown]
  - Infection [Fatal]
  - Rash [Unknown]
  - Fatigue [Unknown]
  - Acute myeloid leukaemia recurrent [Fatal]
  - Thrombocytopenia [Unknown]
  - Skin exfoliation [Unknown]
  - Skin disorder [Unknown]
  - Injection site reaction [Unknown]
  - Pain [Unknown]
  - Pruritus [Unknown]
  - Headache [Unknown]
  - Nasopharyngitis [Unknown]
  - Mucosal inflammation [Unknown]
  - Hypoxia [Unknown]
  - Apnoea [Unknown]
  - Diarrhoea [Unknown]
  - Constipation [Unknown]
  - Lethargy [Unknown]
  - Influenza like illness [Unknown]
  - Graft versus host disease [Fatal]
  - Syncope [Unknown]
  - Depression [Unknown]
  - Nausea [Unknown]
  - Pyrexia [Unknown]
  - Anaemia [Unknown]
  - Neutropenia [Unknown]
  - Oedema [Unknown]
  - Dyspnoea [Unknown]
  - Herpes zoster [Unknown]
  - Cough [Unknown]
  - Decreased appetite [Unknown]
  - Contusion [Unknown]
